FAERS Safety Report 8980373 (Version 2)
Quarter: 2013Q2

REPORT INFORMATION
  Report Type: Spontaneous
  Country: SG (occurrence: SG)
  Receive Date: 20121221
  Receipt Date: 20130429
  Transmission Date: 20140414
  Serious: Yes (Death)
  Sender: FDA-Public Use
  Company Number: PHHY2012SG118102

PATIENT
  Age: 55 Year
  Sex: Male

DRUGS (3)
  1. TEMOZOLOMIDE [Suspect]
     Indication: GLIOBLASTOMA MULTIFORME
     Dosage: 75 MG/M2, QD
     Route: 048
  2. DEXAMETHASONE SANDOZ [Suspect]
     Indication: GLIOBLASTOMA MULTIFORME
     Route: 048
  3. RADIATION [Suspect]
     Indication: GLIOBLASTOMA MULTIFORME
     Dosage: 54 GY, TOTAL

REACTIONS (10)
  - Cryptococcosis [Fatal]
  - Brain mass [Fatal]
  - Lymphadenopathy [Fatal]
  - Hydrocephalus [Fatal]
  - Coma scale abnormal [Fatal]
  - Pyrexia [Fatal]
  - Pleural effusion [Fatal]
  - Brain oedema [Fatal]
  - Pericardial effusion [Fatal]
  - Lymphopenia [Fatal]
